FAERS Safety Report 14772587 (Version 1)
Quarter: 2018Q2

REPORT INFORMATION
  Report Type: Spontaneous
  Country: US (occurrence: US)
  Receive Date: 20180418
  Receipt Date: 20180418
  Transmission Date: 20180711
  Serious: No
  Sender: FDA-Public Use
  Company Number: US-TEVA-2018-US-880944

PATIENT
  Sex: Male

DRUGS (1)
  1. CLONAZEPAM. [Suspect]
     Active Substance: CLONAZEPAM
     Route: 065

REACTIONS (6)
  - Neuralgia [Unknown]
  - Muscle twitching [Unknown]
  - Drug withdrawal syndrome [Unknown]
  - Somnolence [Unknown]
  - Myalgia [Unknown]
  - Inappropriate schedule of drug administration [Unknown]
